FAERS Safety Report 25976027 (Version 3)
Quarter: 2025Q4

REPORT INFORMATION
  Report Type: Spontaneous
  Country: RU (occurrence: RU)
  Receive Date: 20251029
  Receipt Date: 20251111
  Transmission Date: 20260119
  Serious: Yes (Death, Hospitalization)
  Sender: NOVARTIS
  Company Number: RU-002147023-NVSC2025RU165903

PATIENT
  Age: 46 Year
  Sex: Female
  Weight: 70 kg

DRUGS (2)
  1. RIBOCICLIB [Suspect]
     Active Substance: RIBOCICLIB
     Indication: Breast cancer metastatic
     Dosage: UNK
     Route: 048
     Dates: start: 202503, end: 20250511
  2. ANASTROZOLE [Concomitant]
     Active Substance: ANASTROZOLE
     Indication: Breast cancer metastatic
     Dosage: UNK
     Route: 065
     Dates: start: 202201

REACTIONS (37)
  - Interstitial lung disease [Fatal]
  - Body temperature increased [Fatal]
  - Cough [Fatal]
  - Asthenia [Fatal]
  - Respiratory failure [Fatal]
  - Dyspnoea exertional [Fatal]
  - Pulmonary embolism [Fatal]
  - Poisoning [Fatal]
  - Multiple organ dysfunction syndrome [Fatal]
  - Respiratory tract infection viral [Fatal]
  - Septic shock [Fatal]
  - Pneumothorax [Fatal]
  - Sepsis [Fatal]
  - Lung infiltration [Fatal]
  - Resorption bone increased [Unknown]
  - Troponin increased [Unknown]
  - Aortic arteriosclerosis [Unknown]
  - Arteriosclerosis coronary artery [Unknown]
  - General physical health deterioration [Unknown]
  - Anaemia [Unknown]
  - Osteoporosis [Unknown]
  - Spinal osteoarthritis [Unknown]
  - Leukocytosis [Unknown]
  - Left ventricular dilatation [Unknown]
  - Right ventricular dilatation [Unknown]
  - Aortic valve thickening [Unknown]
  - Mitral valve incompetence [Unknown]
  - Mitral valve thickening [Unknown]
  - Tricuspid valve incompetence [Unknown]
  - Tricuspid valve thickening [Unknown]
  - Pericardial effusion [Unknown]
  - Hypoalbuminaemia [Unknown]
  - Gastric ulcer [Unknown]
  - Hypoproteinaemia [Unknown]
  - Cystitis [Unknown]
  - Pyelonephritis [Unknown]
  - Duodenal ulcer [Unknown]

NARRATIVE: CASE EVENT DATE: 20250501
